FAERS Safety Report 9290222 (Version 3)
Quarter: 2013Q2

REPORT INFORMATION
  Report Type: Spontaneous
  Country: US (occurrence: US)
  Receive Date: 20130515
  Receipt Date: 20130618
  Transmission Date: 20140414
  Serious: Yes (Hospitalization, Other)
  Sender: FDA-Public Use
  Company Number: US-PFIZER INC-2013149634

PATIENT
  Age: 57 Year
  Sex: Female
  Weight: 72.11 kg

DRUGS (9)
  1. NEURONTIN [Suspect]
     Indication: NEUROPATHY PERIPHERAL
     Dosage: 300 MG, 3X/DAY
  2. NEURONTIN [Suspect]
     Indication: INTERVERTEBRAL DISC PROTRUSION
     Dosage: 400 MG, 3X/DAY
     Route: 048
     Dates: start: 20120806
  3. NEURONTIN [Suspect]
     Indication: NERVE INJURY
  4. NEURONTIN [Suspect]
     Indication: BACK INJURY
  5. NEURONTIN [Suspect]
     Indication: DIABETIC NEUROPATHY
  6. ULTRAM [Concomitant]
     Dosage: 50 MG, 4X/DAY
  7. VOLTAREN [Concomitant]
     Dosage: 75 MG, 2X/DAY
  8. NEXIUM [Concomitant]
     Dosage: 40 MG/DAY
  9. DESIPRAMINE [Concomitant]
     Dosage: 25 MG/DAY

REACTIONS (2)
  - Diabetes mellitus [Unknown]
  - Malaise [Unknown]
